FAERS Safety Report 23753252 (Version 2)
Quarter: 2024Q2

REPORT INFORMATION
  Report Type: Spontaneous
  Country: ES (occurrence: ES)
  Receive Date: 20240417
  Receipt Date: 20240522
  Transmission Date: 20240716
  Serious: Yes (Other)
  Sender: FDA-Public Use
  Company Number: ES-002147023-NVSC2024ES079615

PATIENT

DRUGS (1)
  1. ASCIMINIB [Suspect]
     Active Substance: ASCIMINIB
     Indication: Chronic myeloid leukaemia
     Dosage: 40 MG, PER 12 H
     Route: 048
     Dates: start: 20220725, end: 20240210

REACTIONS (2)
  - Philadelphia chromosome positive [Unknown]
  - Philadelphia chromosome test [Not Recovered/Not Resolved]

NARRATIVE: CASE EVENT DATE: 20240210
